FAERS Safety Report 8623086-7 (Version None)
Quarter: 2012Q3

REPORT INFORMATION
  Report Type: 
  Country: None (occurrence: None)
  Receive Date: 20120827
  Receipt Date: 20120821
  Transmission Date: 20120928
  Serious: Yes (Death)
  Sender: FDA-Public Use
  Company Number: JP-MILLENNIUM PHARMACEUTICALS, INC.-2012-05922

PATIENT

DRUGS (3)
  1. THALIDOMIDE [Suspect]
     Indication: PRODUCT USED FOR UNKNOWN INDICATION
     Dosage: 50 MG, UNK
     Route: 048
     Dates: start: 20120806, end: 20120809
  2. DEXAMETHASONE [Concomitant]
     Dosage: 20 MG, UNK
     Dates: start: 20120806, end: 20120809
  3. VELCADE [Suspect]
     Indication: PRODUCT USED FOR UNKNOWN INDICATION
     Dosage: 1 MG/M2, UNK
     Route: 042
     Dates: start: 20120806, end: 20120809

REACTIONS (1)
  - HYPOTENSION [None]
